FAERS Safety Report 5972906-3 (Version None)
Quarter: 2008Q4

REPORT INFORMATION
  Report Type: 
  Country: None (occurrence: None)
  Receive Date: 20081201
  Receipt Date: 20081119
  Transmission Date: 20090506
  Serious: Yes (Other)
  Sender: FDA-Public Use
  Company Number: PHEH2008US10403

PATIENT
  Age: 75 Year
  Sex: Female

DRUGS (7)
  1. GLEEVEC [Suspect]
     Indication: CHRONIC MYELOID LEUKAEMIA
     Dosage: 400 MG, QD
     Dates: start: 20010101
  2. GLEEVEC [Suspect]
     Dosage: 200 MG, QD
  3. GLEEVEC [Suspect]
     Dosage: 100 MG, QOD
  4. PLENDIL [Concomitant]
     Dosage: 5 MG, QD
  5. BENICAR [Concomitant]
     Dosage: 20 MG, QD
  6. TOPROL-XL [Concomitant]
     Dosage: 25 MG, QD
  7. TRANXENE [Concomitant]
     Dosage: 7.5 MG, PRN

REACTIONS (17)
  - CHEST DISCOMFORT [None]
  - CONTUSION [None]
  - DIARRHOEA [None]
  - DRY SKIN [None]
  - EYE PAIN [None]
  - FATIGUE [None]
  - GINGIVAL PAIN [None]
  - GLOSSODYNIA [None]
  - LIP PAIN [None]
  - NAIL DISCOLOURATION [None]
  - OCULAR HYPERAEMIA [None]
  - PAROSMIA [None]
  - PSYCHOTIC BEHAVIOUR [None]
  - RASH GENERALISED [None]
  - RASH MACULAR [None]
  - SKIN REACTION [None]
  - TOOTH EROSION [None]
